FAERS Safety Report 16862372 (Version 2)
Quarter: 2019Q4

REPORT INFORMATION
  Report Type: Spontaneous
  Country: DE (occurrence: DE)
  Receive Date: 20190927
  Receipt Date: 20191217
  Transmission Date: 20200122
  Serious: Yes (Other)
  Sender: FDA-Public Use
  Company Number: DE-ACTELION-A-CH2019-195824

PATIENT
  Age: 40 Year
  Sex: Female

DRUGS (2)
  1. SILDENAFIL. [Concomitant]
     Active Substance: SILDENAFIL
     Indication: SYSTEMIC SCLERODERMA
     Dosage: 25 MG, QD
  2. BOSENTAN. [Suspect]
     Active Substance: BOSENTAN
     Indication: SYSTEMIC SCLERODERMA
     Dosage: 125 MG, BID
     Route: 048

REACTIONS (22)
  - Lichenification [Recovered/Resolved]
  - Eosinophilia [Recovered/Resolved]
  - Skin operation [Recovered/Resolved]
  - Gangrene [Recovered/Resolved]
  - Forced expiratory volume decreased [Unknown]
  - Eczema [Recovered/Resolved]
  - Cold agglutinins positive [Recovered/Resolved]
  - Pruritus [Recovered/Resolved]
  - Eosinophil cationic protein increased [Recovered/Resolved]
  - CD4/CD8 ratio increased [Recovered/Resolved]
  - Biopsy skin [Unknown]
  - White blood cell count increased [Recovered/Resolved]
  - Pulmonary eosinophilia [Recovered/Resolved]
  - Antinuclear antibody increased [Recovered/Resolved]
  - Peripheral artery occlusion [Recovered/Resolved]
  - Vital capacity decreased [Unknown]
  - Anaemia [Recovered/Resolved]
  - Cryoglobulins present [Recovered/Resolved]
  - Extremity necrosis [Recovered/Resolved]
  - Hypereosinophilic syndrome [Recovered/Resolved]
  - Hypersensitivity vasculitis [Recovered/Resolved]
  - Chronic obstructive pulmonary disease [Unknown]

NARRATIVE: CASE EVENT DATE: 2017
